FAERS Safety Report 7730988-2 (Version None)
Quarter: 2011Q3

REPORT INFORMATION
  Report Type: 
  Country: None (occurrence: None)
  Receive Date: 20110906
  Receipt Date: 20110824
  Transmission Date: 20111222
  Serious: Yes (Hospitalization)
  Sender: FDA-Public Use
  Company Number: JP-UCBSA-011945

PATIENT
  Sex: Male

DRUGS (9)
  1. ROTIGOTINE [Suspect]
     Indication: PARKINSON'S DISEASE
     Route: 062
     Dates: start: 20100126
  2. MADOPAR [Concomitant]
     Indication: PARKINSON'S DISEASE
     Route: 048
     Dates: start: 20090722
  3. FP-OD [Concomitant]
     Indication: PARKINSON'S DISEASE
     Route: 048
     Dates: start: 20090610
  4. DIPHENHYDRAMINE HCL [Concomitant]
     Dosage: ADEQUATE DOSE PRN
     Dates: start: 20100409
  5. COMTAN [Concomitant]
     Indication: PARKINSON'S DISEASE
     Route: 048
     Dates: start: 20090428
  6. FLIVAS [Concomitant]
     Indication: BENIGN PROSTATIC HYPERPLASIA
     Route: 048
     Dates: start: 20090204, end: 20100505
  7. HYDROCORTISONE BUTYRATE PROPIONATE [Concomitant]
     Dosage: ADEQUATE DOSE AS NECESSARY
     Dates: start: 20091218
  8. DOPS [Concomitant]
     Indication: PARKINSON'S DISEASE
     Route: 048
     Dates: start: 20010101
  9. ROTIGOTINE [Suspect]
     Route: 062
     Dates: start: 20100323, end: 20100517

REACTIONS (5)
  - ANXIETY [None]
  - CEREBRAL ATROPHY [None]
  - HYPONATRAEMIA [None]
  - DYSPNOEA [None]
  - ACTIVITIES OF DAILY LIVING IMPAIRED [None]
